FAERS Safety Report 6616917-3 (Version None)
Quarter: 2010Q1

REPORT INFORMATION
  Report Type: 
  Country: None (occurrence: None)
  Receive Date: 20100305
  Receipt Date: 20100226
  Transmission Date: 20100710
  Serious: Yes (Other)
  Sender: FDA-Public Use
  Company Number: IE-PFIZER INC-2010025661

PATIENT
  Age: 58 Year
  Sex: Male

DRUGS (4)
  1. SOLU-MEDRONE [Suspect]
     Indication: PSORIATIC ARTHROPATHY
     Dosage: 250 MG, UNK
     Route: 042
     Dates: end: 20100215
  2. METHOTREXATE [Concomitant]
  3. FOLIC ACID [Concomitant]
  4. DICLOFENAC [Concomitant]

REACTIONS (4)
  - ASTHENIA [None]
  - COLD SWEAT [None]
  - MALAISE [None]
  - VOMITING PROJECTILE [None]
